FAERS Safety Report 5779675-0 (Version None)
Quarter: 2008Q2

REPORT INFORMATION
  Report Type: 
  Country: None (occurrence: None)
  Receive Date: 20080617
  Receipt Date: 20080605
  Transmission Date: 20081010
  Serious: Yes (Other)
  Sender: FDA-Public Use
  Company Number: 2007AP001081

PATIENT
  Age: 74 Year
  Sex: Female

DRUGS (7)
  1. OMEPRAZOLE [Suspect]
     Indication: DYSPEPSIA
     Dosage: 20 MG; QD; PO
     Route: 048
  2. OMEPRAZOLE [Concomitant]
  3. LOSARTAN POTASSIUM [Concomitant]
  4. DILTIAZEM [Concomitant]
  5. SERTRALINE [Concomitant]
  6. HYDROCHLOROTHIAZIDE [Concomitant]
  7. TRIAMTERENE (TRIAMTERENE) [Concomitant]

REACTIONS (4)
  - BRONCHOSPASM [None]
  - COUGH [None]
  - DRUG INEFFECTIVE [None]
  - DYSPEPSIA [None]
